FAERS Safety Report 4303412-X (Version None)
Quarter: 2004Q1

REPORT INFORMATION
  Report Type: 
  Country: None (occurrence: None)
  Receive Date: 20040223
  Receipt Date: 20040203
  Transmission Date: 20041129
  Serious: Yes (Death)
  Sender: FDA-Public Use
  Company Number: A02200400405

PATIENT
  Sex: Female

DRUGS (5)
  1. PLAVIX [Suspect]
     Indication: CORONARY ANGIOPLASTY
     Dosage: 300 MG LOADING DOSE THEN 75 MG DAILY, ORAL
     Route: 048
     Dates: start: 20040101, end: 20040101
  2. PLAVIX [Suspect]
     Indication: CORONARY ARTERIAL STENT INSERTION
     Dosage: 300 MG LOADING DOSE THEN 75 MG DAILY, ORAL
     Route: 048
     Dates: start: 20040101, end: 20040101
  3. ASPIRIN [Concomitant]
  4. AGRASTAT (TIROFIBAN HYDROCHLORIDE) [Concomitant]
  5. LOVENOX [Concomitant]

REACTIONS (2)
  - ACUTE MYOCARDIAL INFARCTION [None]
  - CORONARY BYPASS THROMBOSIS [None]
